FAERS Safety Report 8624847-0 (Version None)
Quarter: 2012Q3

REPORT INFORMATION
  Report Type: 
  Country: None (occurrence: None)
  Receive Date: 20120827
  Receipt Date: 20120823
  Transmission Date: 20120928
  Serious: Yes (Other)
  Sender: FDA-Public Use
  Company Number: FR-BAYER-2012-088216

PATIENT
  Age: 45 Year
  Sex: Female

DRUGS (4)
  1. VICTOZA [Suspect]
     Dosage: 1.8 MG, QD
     Route: 058
     Dates: start: 20110601, end: 20120514
  2. GLUCOPHAGE [Suspect]
     Dosage: 2000 MG, QD
     Route: 048
     Dates: start: 20040101, end: 20120514
  3. ACARBOSE [Suspect]
     Dosage: 1500 MG, QD
     Route: 048
     Dates: end: 20120514
  4. DIAMICRON [Suspect]
     Dosage: 30 MG, QD
     Route: 048
     Dates: end: 20120514

REACTIONS (1)
  - ABORTION SPONTANEOUS [None]
